FAERS Safety Report 9142655 (Version 3)
Quarter: 2013Q2

REPORT INFORMATION
  Report Type: Report from Study
  Country: CA (occurrence: CA)
  Receive Date: 20130306
  Receipt Date: 20130415
  Transmission Date: 20140414
  Serious: Yes (Death, Hospitalization, Other)
  Sender: FDA-Public Use
  Company Number: PHHY2013CA021661

PATIENT
  Sex: Female

DRUGS (7)
  1. CLOZARIL [Suspect]
     Indication: SCHIZOPHRENIA
     Dosage: UNK
     Dates: start: 20081106
  2. CLOZARIL [Suspect]
     Dosage: 75 MG, UNK
     Dates: start: 2009
  3. ARICEPT [Concomitant]
     Dosage: 5 MG, QD
  4. SINEMET [Concomitant]
     Dosage: UNK (1 1/2 10 PER DAY)
  5. LASIX [Concomitant]
     Dosage: 20 MG, QD
  6. SLOW K [Concomitant]
     Dosage: UNK
  7. EFFEXOR [Concomitant]
     Dosage: 150 MG, QD

REACTIONS (4)
  - Pneumonia [Fatal]
  - Loss of consciousness [Unknown]
  - Circulatory collapse [Unknown]
  - Parkinson^s disease [Unknown]
